FAERS Safety Report 7111396-4 (Version None)
Quarter: 2010Q4

REPORT INFORMATION
  Report Type: 
  Country: None (occurrence: None)
  Receive Date: 20101118
  Receipt Date: 20100223
  Transmission Date: 20110411
  Serious: No
  Sender: FDA-Public Use
  Company Number: US-TEVA-219526USA

PATIENT
  Sex: Male
  Weight: 118.04 kg

DRUGS (10)
  1. ALBUTEROL SULFATE AUTOHALER [Suspect]
     Indication: ASTHMA
     Route: 055
     Dates: start: 20090801
  2. ALBUTEROL SULFATE AUTOHALER [Suspect]
     Indication: CHRONIC OBSTRUCTIVE PULMONARY DISEASE
  3. TERAZOSIN HYDROCHLORIDE [Concomitant]
  4. LEVOTHYROXINE SODIUM [Concomitant]
  5. OMEPRAZOLE [Concomitant]
  6. SERETIDE [Concomitant]
     Dosage: 250/50
  7. TIOTROPIUM BROMIDE [Concomitant]
     Dosage: DAILY
  8. TADALAFIL [Concomitant]
  9. PREDNISONE [Concomitant]
  10. FLUTICASONE PROPIONATE [Concomitant]

REACTIONS (4)
  - ASTHMA [None]
  - BRONCHOSPASM [None]
  - COUGH [None]
  - DRUG INEFFECTIVE [None]
